FAERS Safety Report 7717414-4 (Version None)
Quarter: 2011Q3

REPORT INFORMATION
  Report Type: 
  Country: None (occurrence: None)
  Receive Date: 20110824
  Receipt Date: 20110809
  Transmission Date: 20111222
  Serious: Yes (Disabling, Other)
  Sender: FDA-Public Use
  Company Number: 2011MA011848

PATIENT
  Sex: Female

DRUGS (2)
  1. METOCLOPRAMIDE [Suspect]
     Indication: IMPAIRED GASTRIC EMPTYING
  2. METOCLOPRAMIDE [Suspect]
     Indication: NAUSEA

REACTIONS (10)
  - NERVOUS SYSTEM DISORDER [None]
  - INSOMNIA [None]
  - ANHEDONIA [None]
  - INJURY [None]
  - PAIN [None]
  - TARDIVE DYSKINESIA [None]
  - DEPRESSION [None]
  - ANXIETY [None]
  - INTENTIONAL DRUG MISUSE [None]
  - HYPERVENTILATION [None]
